FAERS Safety Report 10684044 (Version 1)
Quarter: 2014Q4

REPORT INFORMATION
  Report Type: Spontaneous
  Country: NZ (occurrence: NZ)
  Receive Date: 20141230
  Receipt Date: 20141230
  Transmission Date: 20150529
  Serious: Yes (Hospitalization)
  Sender: FDA-Public Use
  Company Number: NZ-MYLANLABS-2014M1015167

PATIENT

DRUGS (9)
  1. PARACETAMOL [Concomitant]
     Active Substance: ACETAMINOPHEN
     Indication: HEADACHE
     Route: 048
  2. ANTINAUSEA MEDICATION [Suspect]
     Active Substance: UNSPECIFIED INGREDIENT
     Indication: HEADACHE
     Route: 048
  3. GLICLAZIDE [Concomitant]
     Active Substance: GLICLAZIDE
     Indication: TYPE 2 DIABETES MELLITUS
     Dosage: UNK
     Route: 048
  4. ANTINAUSEA MEDICATION [Suspect]
     Active Substance: UNSPECIFIED INGREDIENT
     Indication: DIZZINESS
  5. ANTINAUSEA MEDICATION [Suspect]
     Active Substance: UNSPECIFIED INGREDIENT
     Indication: DECREASED APPETITE
  6. FELO [Concomitant]
     Indication: HYPERTENSION
     Dosage: UNK
     Route: 048
  7. METFORMIN [Concomitant]
     Active Substance: METFORMIN HYDROCHLORIDE
     Indication: TYPE 2 DIABETES MELLITUS
     Dosage: UNK
     Route: 048
  8. NUROFEN                            /00109201/ [Concomitant]
     Active Substance: IBUPROFEN
     Indication: HEADACHE
     Dosage: UNK
     Route: 048
     Dates: start: 20141215
  9. NORPRESS [Suspect]
     Active Substance: NORTRIPTYLINE HYDROCHLORIDE
     Indication: HEADACHE
     Dosage: UNK UNK, QD
     Route: 048
     Dates: start: 20141215, end: 20141218

REACTIONS (11)
  - Incoherent [Recovered/Resolved]
  - Drug ineffective [Unknown]
  - Dysuria [Recovered/Resolved]
  - Gait disturbance [Recovered/Resolved]
  - Dry throat [Recovered/Resolved]
  - Nausea [Recovered/Resolved]
  - Functional gastrointestinal disorder [Recovered/Resolved]
  - Feeling abnormal [Recovered/Resolved]
  - Disorientation [Recovered/Resolved]
  - Vomiting [Recovered/Resolved]
  - Blood glucose decreased [Recovered/Resolved]

NARRATIVE: CASE EVENT DATE: 2014
